FAERS Safety Report 14512740 (Version 3)
Quarter: 2020Q1

REPORT INFORMATION
  Report Type: Spontaneous
  Country: US (occurrence: US)
  Receive Date: 20180209
  Receipt Date: 20200311
  Transmission Date: 20200409
  Serious: Yes (Hospitalization)
  Sender: FDA-Public Use
  Company Number: US-VIFOR (INTERNATIONAL) INC.-VIT-2018-01375

PATIENT
  Age: 63 Year
  Sex: Female

DRUGS (15)
  1. VELTASSA [Suspect]
     Active Substance: PATIROMER
     Route: 048
     Dates: start: 201801
  2. PREDNISONE. [Concomitant]
     Active Substance: PREDNISONE
  3. LEVOTHYROXINE SODIUM. [Concomitant]
     Active Substance: LEVOTHYROXINE SODIUM
  4. AMLODIPINE BESYLATE. [Concomitant]
     Active Substance: AMLODIPINE BESYLATE
  5. CALCITRIOL. [Concomitant]
     Active Substance: CALCITRIOL
  6. RENVELA [Concomitant]
     Active Substance: SEVELAMER CARBONATE
  7. VELTASSA [Suspect]
     Active Substance: PATIROMER
     Indication: HYPERKALAEMIA
     Route: 048
     Dates: start: 20170907
  8. CLONIDINE HCL [Concomitant]
     Active Substance: CLONIDINE HYDROCHLORIDE
  9. FOLIC ACID. [Concomitant]
     Active Substance: FOLIC ACID
  10. ASPIR 81 [Concomitant]
     Active Substance: ASPIRIN
  11. KAYEXALATE [Concomitant]
     Active Substance: SODIUM POLYSTYRENE SULFONATE
  12. SENSIPAR [Concomitant]
     Active Substance: CINACALCET HYDROCHLORIDE
  13. LABETALOL HCL [Concomitant]
     Active Substance: LABETALOL HYDROCHLORIDE
  14. ATORVASTATIN CALCIUM. [Concomitant]
     Active Substance: ATORVASTATIN CALCIUM
  15. TERAZOSIN HCL [Concomitant]
     Active Substance: TERAZOSIN HYDROCHLORIDE

REACTIONS (4)
  - Constipation [Unknown]
  - Product dose omission [Unknown]
  - Off label use [Unknown]
  - Hospitalisation [Unknown]

NARRATIVE: CASE EVENT DATE: 201709
